FAERS Safety Report 23339783 (Version 3)
Quarter: 2024Q1

REPORT INFORMATION
  Report Type: Spontaneous
  Country: JP (occurrence: JP)
  Receive Date: 20231226
  Receipt Date: 20240117
  Transmission Date: 20240410
  Serious: Yes (Hospitalization, Other)
  Sender: FDA-Public Use
  Company Number: JP-002147023-NVSJ2023JP018106

PATIENT
  Age: 97 Year
  Sex: Female

DRUGS (1)
  1. ENTRESTO [Suspect]
     Active Substance: SACUBITRIL\VALSARTAN
     Indication: Product used for unknown indication
     Dosage: UNK
     Route: 048

REACTIONS (8)
  - Pneumonia aspiration [Unknown]
  - Cardiac failure [Unknown]
  - Respiration abnormal [Unknown]
  - Acute kidney injury [Unknown]
  - Dehydration [Unknown]
  - Immobilisation syndrome [Unknown]
  - Eating disorder [Unknown]
  - Urinary tract infection [Unknown]
